FAERS Safety Report 6092816-3 (Version None)
Quarter: 2009Q1

REPORT INFORMATION
  Report Type: 
  Country: None (occurrence: None)
  Receive Date: 20090225
  Receipt Date: 20090217
  Transmission Date: 20090719
  Serious: Yes (Other)
  Sender: FDA-Public Use
  Company Number: GB-ELI_LILLY_AND_COMPANY-GB200902004031

PATIENT
  Sex: Female
  Weight: 91.6 kg

DRUGS (7)
  1. OLANZAPINE [Suspect]
     Indication: MAJOR DEPRESSION
     Dosage: 5 MG, EACH EVENING
     Route: 048
     Dates: start: 20081127, end: 20081101
  2. OLANZAPINE [Suspect]
     Dosage: 5 MG, 2/D
     Route: 048
     Dates: start: 20081101, end: 20081201
  3. OLANZAPINE [Suspect]
     Dosage: 7.5 MG, EACH EVENING
     Route: 048
     Dates: start: 20081201, end: 20081208
  4. BENDROFLUMETHIAZIDE [Concomitant]
  5. CANDESARTAN CILEXETIL [Concomitant]
  6. HYDROCORTISONE [Concomitant]
  7. MIRTAZAPINE [Concomitant]

REACTIONS (2)
  - FALL [None]
  - PERONEAL NERVE PALSY [None]
